FAERS Safety Report 10739889 (Version 1)
Quarter: 2015Q1

REPORT INFORMATION
  Report Type: Spontaneous
  Country: US (occurrence: US)
  Receive Date: 20150127
  Receipt Date: 20150127
  Transmission Date: 20150721
  Serious: Yes (Other)
  Sender: FDA-Public Use
  Company Number: US-JNJFOC-20150109461

PATIENT
  Age: 40 Year
  Sex: Female
  Weight: 81.65 kg

DRUGS (2)
  1. TYLENOL ARTHRITIS PAIN [Suspect]
     Active Substance: ACETAMINOPHEN
     Route: 048
  2. TYLENOL ARTHRITIS PAIN [Suspect]
     Active Substance: ACETAMINOPHEN
     Indication: SUICIDE ATTEMPT
     Dosage: (10.4G ONCE)
     Route: 048
     Dates: start: 20051028, end: 20051028

REACTIONS (3)
  - Nausea [Recovered/Resolved]
  - Intentional overdose [Recovered/Resolved]
  - Suicide attempt [None]

NARRATIVE: CASE EVENT DATE: 20051028
